FAERS Safety Report 25944320 (Version 4)
Quarter: 2025Q4

REPORT INFORMATION
  Report Type: Spontaneous
  Country: EU (occurrence: EU)
  Receive Date: 20251021
  Receipt Date: 20251202
  Transmission Date: 20260117
  Serious: Yes (Other)
  Sender: AUROBINDO
  Company Number: EU-002147023-NVSC2025DE157305

PATIENT
  Age: 57 Year
  Sex: Female
  Weight: 61 kg

DRUGS (10)
  1. LETROZOLE [Suspect]
     Active Substance: LETROZOLE
     Indication: Hormone receptor positive HER2 negative breast cancer
     Dosage: 2.5 MILLIGRAM, ONCE A DAY (2.5 MG (TOTAL DAILY DOSE))
     Dates: start: 20250721
  2. KISQALI [Suspect]
     Active Substance: RIBOCICLIB SUCCINATE
     Indication: Hormone receptor positive HER2 negative breast cancer
     Dosage: 200 MILLIGRAM, ONCE A DAY ((200 MG (TOTAL DAILY DOSE)21 DAYS DAILY INTAKE, 7 DAYS PAUSE)
     Dates: start: 20250721
  3. KISQALI [Suspect]
     Active Substance: RIBOCICLIB SUCCINATE
     Dosage: 200 MILLIGRAM, ONCE A DAY ((200 MG (TOTAL DAILY DOSE)21 DAYS DAILY INTAKE, 7 DAYS PAUSE)
     Dates: start: 20250818
  4. KISQALI [Suspect]
     Active Substance: RIBOCICLIB SUCCINATE
     Dosage: 200 MILLIGRAM, ONCE A DAY ((200 MG (TOTAL DAILY DOSE)21 DAYS DAILY INTAKE, 7 DAYS PAUSE)
     Dates: start: 20250915
  5. KISQALI [Suspect]
     Active Substance: RIBOCICLIB SUCCINATE
     Dosage: 200 MILLIGRAM, ONCE A DAY ((200 MG (TOTAL DAILY DOSE)21 DAYS DAILY INTAKE, 7 DAYS PAUSE)
     Dates: start: 20251013, end: 20251023
  6. KISQALI [Suspect]
     Active Substance: RIBOCICLIB SUCCINATE
     Dosage: 200 MILLIGRAM, ONCE A DAY ((200 MG (TOTAL DAILY DOSE)21 DAYS DAILY INTAKE, 7 DAYS PAUSE)
     Dates: start: 20251024, end: 20251025
  7. KISQALI [Suspect]
     Active Substance: RIBOCICLIB SUCCINATE
     Dosage: 200 MILLIGRAM, ONCE A DAY ((200 MG (TOTAL DAILY DOSE)21 DAYS DAILY INTAKE, 7 DAYS PAUSE)
     Dates: start: 20251026
  8. LEVOTHYROXINE SODIUM [Concomitant]
     Active Substance: LEVOTHYROXINE SODIUM
     Indication: Hypothyroidism
     Dosage: 75 MICROGRAM, ONCE A DAY
     Dates: start: 20250512, end: 20250719
  9. LEVOTHYROXINE SODIUM [Concomitant]
     Active Substance: LEVOTHYROXINE SODIUM
     Dosage: 25 MICROGRAM, ONCE A DAY
     Dates: start: 20250919
  10. AMITRIPTYLINE [Concomitant]
     Active Substance: AMITRIPTYLINE
     Indication: Product used for unknown indication
     Dosage: 25 MILLIGRAM
     Route: 065

REACTIONS (8)
  - Electrocardiogram QT prolonged [Not Recovered/Not Resolved]
  - Leukopenia [Not Recovered/Not Resolved]
  - Somnolence [Not Recovered/Not Resolved]
  - Nasopharyngitis [Recovered/Resolved]
  - Dizziness [Recovered/Resolved]
  - Throat irritation [Recovered/Resolved]
  - Oral mucosal blistering [Recovered/Resolved]
  - Herpes virus infection [Recovered/Resolved]

NARRATIVE: CASE EVENT DATE: 20250811
